FAERS Safety Report 20472271 (Version 3)
Quarter: 2023Q1

REPORT INFORMATION
  Report Type: Spontaneous
  Country: CA (occurrence: CA)
  Receive Date: 20220214
  Receipt Date: 20230106
  Transmission Date: 20230417
  Serious: Yes (Other)
  Sender: FDA-Public Use
  Company Number: CA-SAMSUNG BIOEPIS-SB-2022-03341

PATIENT
  Age: 28 Year
  Sex: Male
  Weight: 81 kg

DRUGS (6)
  1. INFLIXIMAB [Suspect]
     Active Substance: INFLIXIMAB
     Indication: Crohn^s disease
     Route: 042
  2. CIPROFLOXACIN [Concomitant]
     Active Substance: CIPROFLOXACIN
     Indication: Product used for unknown indication
     Route: 065
  3. METHOTREXATE [Concomitant]
     Active Substance: METHOTREXATE
     Indication: Crohn^s disease
     Dosage: UNKNOWN
     Route: 058
  4. METRONIDAZOLE BENZOATE [Concomitant]
     Active Substance: METRONIDAZOLE BENZOATE
     Indication: Product used for unknown indication
     Route: 065
  5. AZATHIOPRINE [Concomitant]
     Active Substance: AZATHIOPRINE
     Indication: Product used for unknown indication
     Route: 065
  6. HERBALS\PLANTAGO OVATA LEAF [Concomitant]
     Active Substance: HERBALS\PLANTAGO OVATA LEAF
     Indication: Product used for unknown indication
     Dosage: UNKNOWN
     Route: 065

REACTIONS (12)
  - Anal fissure [Not Recovered/Not Resolved]
  - Anal fistula [Not Recovered/Not Resolved]
  - Anxiety [Not Recovered/Not Resolved]
  - Condition aggravated [Not Recovered/Not Resolved]
  - Fistula discharge [Not Recovered/Not Resolved]
  - Haemorrhage [Not Recovered/Not Resolved]
  - Pain [Not Recovered/Not Resolved]
  - Palpitations [Not Recovered/Not Resolved]
  - COVID-19 [Not Recovered/Not Resolved]
  - Abscess [Not Recovered/Not Resolved]
  - Off label use [Not Recovered/Not Resolved]
  - Intentional product use issue [Not Recovered/Not Resolved]
